FAERS Safety Report 6704621-2 (Version None)
Quarter: 2010Q2

REPORT INFORMATION
  Report Type: 
  Country: None (occurrence: None)
  Receive Date: 20100430
  Receipt Date: 20100422
  Transmission Date: 20101027
  Serious: Yes (Disabling)
  Sender: FDA-Public Use
  Company Number: NO-TEVA-232136ISR

PATIENT
  Sex: Female

DRUGS (3)
  1. FOLINIC ACID [Suspect]
     Indication: COLON CANCER
     Dosage: GIVEN ON 2 CONSEQUTIVE DAYS EACH TIME, EVERY 2ND WEEK. NINE OR TEN SUCH TREATMENTS WERE GIVEN
     Route: 041
     Dates: start: 20090814, end: 20091222
  2. OXALIPLATIN [Suspect]
     Indication: COLON CANCER
     Dosage: GIVEN AS A TREATMENT EVERY 2ND WEEK. NINE OR TEN SUCH TREATMENTS WERE GIVEN.
     Route: 041
     Dates: start: 20090814, end: 20091222
  3. FLUOROURACIL [Suspect]
     Indication: COLON CANCER
     Dosage: GIVEN ON 2 CONSEQUTIVE DAYS EACH TIME, EVERY 2ND WEEK. NINE OR TEN SUCH TREATMENTS WERE GIVEN
     Route: 041
     Dates: start: 20090814, end: 20091222

REACTIONS (4)
  - DRY SKIN [None]
  - DYSAESTHESIA [None]
  - PARAESTHESIA [None]
  - PERIPHERAL COLDNESS [None]
